FAERS Safety Report 7373090-4 (Version None)
Quarter: 2011Q1

REPORT INFORMATION
  Report Type: 
  Country: None (occurrence: None)
  Receive Date: 20110324
  Receipt Date: 20110321
  Transmission Date: 20110831
  Serious: Yes (Other)
  Sender: FDA-Public Use
  Company Number: FR-PFIZER INC-2011042564

PATIENT
  Sex: Male

DRUGS (1)
  1. TAHOR [Suspect]
     Dosage: UNK

REACTIONS (1)
  - HIGH DENSITY LIPOPROTEIN DECREASED [None]
